FAERS Safety Report 21032906 (Version 3)
Quarter: 2022Q3

REPORT INFORMATION
  Report Type: Spontaneous
  Country: US (occurrence: US)
  Receive Date: 20220701
  Receipt Date: 20220725
  Transmission Date: 20221026
  Serious: Yes (Death, Hospitalization, Other)
  Sender: FDA-Public Use
  Company Number: US-009507513-2206USA008109

PATIENT
  Sex: Male

DRUGS (21)
  1. KEYTRUDA [Suspect]
     Active Substance: PEMBROLIZUMAB
     Indication: Prostate cancer
     Dosage: EVERY 3 WEEKS
     Dates: start: 20220118
  2. KEYTRUDA [Suspect]
     Active Substance: PEMBROLIZUMAB
     Dosage: EVERY 3 WEEKS
     Dates: start: 20220208
  3. KEYTRUDA [Suspect]
     Active Substance: PEMBROLIZUMAB
     Dosage: UNK
  4. PRAVASTATIN [Concomitant]
     Active Substance: PRAVASTATIN
     Dosage: 40 MILLIGRAM/DAY
  5. LEVOTHYROXINE [Concomitant]
     Active Substance: LEVOTHYROXINE
     Dosage: 125 MICROGRAM
  6. LEVOTHYROXINE [Concomitant]
     Active Substance: LEVOTHYROXINE
     Dosage: 25 MILLIGRAM
     Dates: start: 20210207
  7. COENZYME Q10 [Concomitant]
     Active Substance: DIETARY SUPPLEMENT\UBIDECARENONE
     Dosage: 100 MILLIGRAM/DAY
  8. VITAMINS [Concomitant]
     Active Substance: VITAMINS
     Dosage: 1/DAY
  9. FLOMAX [Concomitant]
     Active Substance: TAMSULOSIN HYDROCHLORIDE
     Dosage: MG CAPSULE ? HOUR AFTER SAME MEAL EACH DAY
  10. MAGNESIUM [Concomitant]
     Active Substance: MAGNESIUM
     Dosage: 250 MILLIGRAM/DAY
  11. CALCIUM [Concomitant]
     Active Substance: CALCIUM
     Dosage: 600 MILLIGRAM/DAY
  12. GABAPENTIN [Concomitant]
     Active Substance: GABAPENTIN
     Dosage: 400 MILLIGRAM, 3X/DAY
  13. ELIGARD [Concomitant]
     Active Substance: LEUPROLIDE ACETATE
     Dosage: ONCE EVERY 3 MONTHS
     Dates: start: 2020
  14. EUTHYROX [Concomitant]
     Active Substance: LEVOTHYROXINE SODIUM
     Dosage: 123 MILLIGRAM
  15. VENLAFAXINE HCL [Concomitant]
     Active Substance: VENLAFAXINE HYDROCHLORIDE
     Dosage: 37.5 MILLIGRAM/DAY
  16. NAPROXEN SODIUM [Concomitant]
     Active Substance: NAPROXEN SODIUM
     Dosage: 220 MILLIGRAM, 2X/DAY
  17. FUROSEMIDE [Concomitant]
     Active Substance: FUROSEMIDE
     Dosage: 20 MILLIGRAM, 1/DAY
  18. OXYCODONE HYDROCHLORIDE [Concomitant]
     Active Substance: OXYCODONE HYDROCHLORIDE
     Dosage: AS NEEDED FOR PAIN
  19. TIZANIDINE [Concomitant]
     Active Substance: TIZANIDINE
     Dosage: UNK
  20. LORAZEPAM [Concomitant]
     Active Substance: LORAZEPAM
     Dosage: 0.5 MG UNDER TONGUE EVERY 4 HOURS AS NEEDED
  21. MORPHINE SULFATE [Concomitant]
     Active Substance: MORPHINE SULFATE
     Dosage: 100MG/5ML, .025 ML (5 MG) BY MOUTH EVERY 2 HOURS AS NEEDED FOR PAIN

REACTIONS (24)
  - Death [Fatal]
  - Contusion [Unknown]
  - Coma [Unknown]
  - Dysphagia [Unknown]
  - Balance disorder [Unknown]
  - Ageusia [Unknown]
  - Mouth haemorrhage [Unknown]
  - Epistaxis [Unknown]
  - Mouth haemorrhage [Unknown]
  - Epistaxis [Unknown]
  - Tooth disorder [Unknown]
  - Feeding disorder [Unknown]
  - Incoherent [Unknown]
  - Faeces discoloured [Unknown]
  - Artificial crown procedure [Unknown]
  - Back pain [Unknown]
  - Vomiting [Unknown]
  - Decreased appetite [Unknown]
  - Headache [Unknown]
  - Nausea [Unknown]
  - Platelet count decreased [Unknown]
  - Arthralgia [Unknown]
  - Dyspnoea [Unknown]
  - Product use in unapproved indication [Unknown]

NARRATIVE: CASE EVENT DATE: 20220101
